FAERS Safety Report 6554093-6 (Version None)
Quarter: 2010Q1

REPORT INFORMATION
  Report Type: 
  Country: None (occurrence: None)
  Receive Date: 20100127
  Receipt Date: 20100115
  Transmission Date: 20100710
  Serious: Yes (Hospitalization)
  Sender: FDA-Public Use
  Company Number: US-ELI_LILLY_AND_COMPANY-US201001003557

PATIENT
  Sex: Female

DRUGS (5)
  1. CYMBALTA [Suspect]
     Indication: DEPRESSION
     Dosage: 60 MG, DAILY (1/D)
     Dates: end: 20090101
  2. CYMBALTA [Suspect]
     Dosage: 30 MG, DAILY (1/D)
     Dates: start: 20090101, end: 20090101
  3. CYMBALTA [Suspect]
     Dosage: 30 MG, UNK
     Dates: start: 20090101, end: 20090101
  4. CYMBALTA [Suspect]
     Dosage: 60 MG, UNK
  5. PROZAC [Suspect]
     Dosage: UNK, UNK
     Dates: start: 20090101

REACTIONS (5)
  - DEHYDRATION [None]
  - DRUG WITHDRAWAL SYNDROME [None]
  - HEADACHE [None]
  - INFLUENZA LIKE ILLNESS [None]
  - NAUSEA [None]
